FAERS Safety Report 6503202-3 (Version None)
Quarter: 2009Q4

REPORT INFORMATION
  Report Type: 
  Country: None (occurrence: None)
  Receive Date: 20091217
  Receipt Date: 20091210
  Transmission Date: 20100525
  Serious: Yes (Other)
  Sender: FDA-Public Use
  Company Number: US-JNJFOC-20091204069

PATIENT
  Sex: Female
  Weight: 48.54 kg

DRUGS (9)
  1. IMODIUM A-D [Suspect]
     Route: 048
  2. IMODIUM A-D [Suspect]
     Indication: DIARRHOEA
     Route: 048
  3. NORVASC [Concomitant]
     Indication: CARDIAC DISORDER
     Route: 065
  4. DIGOXIN [Concomitant]
     Indication: CARDIAC DISORDER
     Route: 065
  5. TOPROL-XL [Concomitant]
     Indication: CARDIAC DISORDER
     Route: 065
  6. LIPITOR [Concomitant]
     Indication: BLOOD CHOLESTEROL INCREASED
     Route: 065
  7. CENTRUM SILVER [Concomitant]
     Indication: NUTRITIONAL SUPPORT
     Dosage: 1 MOST DAYS
     Route: 065
  8. PHYTOESTROL N [Concomitant]
     Indication: MEDICAL DIET
     Dosage: TAKES AS NEEDED BEFORE MEALS
     Route: 065
  9. ASPIRIN [Concomitant]
     Indication: CARDIAC DISORDER
     Route: 065

REACTIONS (5)
  - ASTHENIA [None]
  - CONSTIPATION [None]
  - DYSPEPSIA [None]
  - FATIGUE [None]
  - HYPOTENSION [None]
